FAERS Safety Report 14705183 (Version 1)
Quarter: 2018Q2

REPORT INFORMATION
  Report Type: Spontaneous
  Country: FR (occurrence: FR)
  Receive Date: 20180402
  Receipt Date: 20180402
  Transmission Date: 20180711
  Serious: Yes (Hospitalization, Other)
  Sender: FDA-Public Use
  Company Number: FR-PFIZER INC-2018129748

PATIENT
  Age: 30 Year
  Sex: Female
  Weight: 65 kg

DRUGS (4)
  1. EFFEXOR [Suspect]
     Active Substance: VENLAFAXINE HYDROCHLORIDE
     Dosage: 675 MG, SINGLE
     Route: 048
     Dates: start: 20171228, end: 20171228
  2. ALPRAZOLAM. [Suspect]
     Active Substance: ALPRAZOLAM
     Dosage: 15 DF, UNK
     Route: 048
     Dates: start: 20171228, end: 20171228
  3. TETRAHYDROCANNABINOLS [Suspect]
     Active Substance: DRONABINOL
     Dosage: UNK
  4. THERALENE [Suspect]
     Active Substance: TRIMEPRAZINE
     Dosage: 125 MG, UNK
     Route: 048
     Dates: start: 20171228, end: 20171228

REACTIONS (6)
  - Overdose [Unknown]
  - Somnolence [Recovered/Resolved]
  - Suicide attempt [Unknown]
  - Vomiting [Recovered/Resolved]
  - Agitation [Recovered/Resolved]
  - Bradycardia [Recovered/Resolved]

NARRATIVE: CASE EVENT DATE: 20171228
